FAERS Safety Report 22203095 (Version 5)
Quarter: 2023Q2

REPORT INFORMATION
  Report Type: Spontaneous
  Country: EE (occurrence: EE)
  Receive Date: 20230412
  Receipt Date: 20230505
  Transmission Date: 20230722
  Serious: Yes (Other)
  Sender: FDA-Public Use
  Company Number: EE-MENARINI-EE-MEN-087493

PATIENT
  Age: 75 Year
  Sex: Female

DRUGS (7)
  1. RANEXA [Suspect]
     Active Substance: RANOLAZINE
     Indication: Angina pectoris
     Dosage: 375 MG, ONCE, FIRST DOSE AT 8AM, HAD NOT USED IT EARLIER
     Route: 065
     Dates: start: 20221130, end: 20221130
  2. RANEXA [Suspect]
     Active Substance: RANOLAZINE
     Dosage: 375 MG  PROLONGED-RELEASE TABLETS
     Route: 048
     Dates: start: 20230110, end: 20230110
  3. PERINDOPRIL [Concomitant]
     Active Substance: PERINDOPRIL
     Indication: Coronary artery disease
     Dosage: 4 MG, QD, AT 8AM FOR 3 YRS
     Route: 048
     Dates: start: 2020
  4. PERINDOPRIL [Concomitant]
     Active Substance: PERINDOPRIL
     Indication: Hypertension
  5. DELIPID PLUS [Concomitant]
     Indication: Product used for unknown indication
     Dosage: 20MG/10MG, ONCE
     Route: 048
     Dates: start: 20210831
  6. DELIPID PLUS [Concomitant]
     Indication: Product used for unknown indication
     Dosage: 20 MG/10 MG (20 MG/10 MG, 1 IN 1 D)
     Route: 048
     Dates: start: 20210831, end: 20230301
  7. ROSAZIMIB [Concomitant]

REACTIONS (10)
  - Depressed level of consciousness [Recovered/Resolved]
  - Malaise [Recovered/Resolved]
  - Feeling cold [Recovered/Resolved]
  - Peripheral coldness [Recovered/Resolved]
  - Fatigue [Recovered/Resolved]
  - Body temperature increased [Recovered/Resolved]
  - Cold sweat [Recovered/Resolved]
  - Pallor [Recovered/Resolved]
  - Cyanosis [Recovered/Resolved]
  - Hypoaesthesia [Recovered/Resolved]

NARRATIVE: CASE EVENT DATE: 20221130
